FAERS Safety Report 18308544 (Version 1)
Quarter: 2020Q3

REPORT INFORMATION
  Report Type: Spontaneous
  Country: CA (occurrence: CA)
  Receive Date: 20200924
  Receipt Date: 20200924
  Transmission Date: 20201103
  Serious: Yes (Other)
  Sender: FDA-Public Use
  Company Number: CA-TEVA-2020-CA-1829940

PATIENT
  Age: 27 Year
  Sex: Female

DRUGS (1)
  1. TEVA PREDNISOLONE [Suspect]
     Active Substance: PREDNISOLONE
     Dates: start: 20200820, end: 20200911

REACTIONS (2)
  - Maternal exposure during pregnancy [Unknown]
  - Eye haemorrhage [Not Recovered/Not Resolved]

NARRATIVE: CASE EVENT DATE: 202009
